FAERS Safety Report 5318175-9 (Version None)
Quarter: 2007Q2

REPORT INFORMATION
  Report Type: 
  Country: None (occurrence: None)
  Receive Date: 20070507
  Receipt Date: 20070430
  Transmission Date: 20071010
  Serious: Yes (Other)
  Sender: FDA-Public Use
  Company Number: US-ASTRAZENECA-2006UW24143

PATIENT
  Sex: Male
  Weight: 85 kg

DRUGS (5)
  1. SEROQUEL [Suspect]
     Indication: SLEEP DISORDER
     Dosage: 50-375 MG PER DAY
     Route: 048
     Dates: start: 20011012
  2. RISPERDAL [Concomitant]
     Dates: start: 20060101
  3. OLANZAPINE [Concomitant]
  4. LITHIUM CARBONATE [Concomitant]
  5. DEPAKOTE [Concomitant]

REACTIONS (4)
  - DIABETES MELLITUS [None]
  - GALLBLADDER OPERATION [None]
  - PANCREATITIS [None]
  - TARDIVE DYSKINESIA [None]
